FAERS Safety Report 5450811-9 (Version None)
Quarter: 2007Q3

REPORT INFORMATION
  Report Type: 
  Country: None (occurrence: None)
  Receive Date: 20070803
  Receipt Date: 20060717
  Transmission Date: 20080115
  Serious: Yes (Hospitalization)
  Sender: FDA-Public Use
  Company Number: US-JNJFOC-20060500449

PATIENT
  Age: 17 Year
  Sex: Female
  Weight: 68.0396 kg

DRUGS (6)
  1. EXTRA STRENGTH TYLENOL [Suspect]
     Indication: ANALGESIA
     Dosage: 25000 MG, 1 IN 1 TOTAL
     Dates: start: 20060320, end: 20060320
  2. EXTRA STRENGTH TYLENOL [Suspect]
     Indication: SUICIDE ATTEMPT
     Dosage: 25000 MG, 1 IN 1 TOTAL
     Dates: start: 20060320, end: 20060320
  3. ACCUTANE [Suspect]
     Indication: ACNE CYSTIC
     Dosage: 40 MG, 1 IN 1 DAY, ORAL
     Route: 048
     Dates: start: 20060117, end: 20060320
  4. ACCUTANE [Suspect]
     Indication: ACNE CYSTIC
     Dosage: 40 MG, 1 IN 1 DAY, ORAL
     Route: 048
     Dates: start: 20060117
  5. ZOLOFT [Concomitant]
  6. BIRTH CONTROL PILLS (ORAL CONTRCEPTIVE NOS) [Concomitant]

REACTIONS (1)
  - INTENTIONAL OVERDOSE [None]
